FAERS Safety Report 4893914-X (Version None)
Quarter: 2006Q1

REPORT INFORMATION
  Report Type: 
  Country: None (occurrence: None)
  Receive Date: 20060127
  Receipt Date: 20050202
  Transmission Date: 20060701
  Serious: No
  Sender: FDA-Public Use
  Company Number: US-GLAXOSMITHKLINE-A0543757A

PATIENT
  Sex: Female

DRUGS (2)
  1. WELLBUTRIN [Suspect]
     Indication: DEPRESSION
     Route: 048
  2. DEPAKOTE [Concomitant]
     Indication: BIPOLAR DISORDER

REACTIONS (2)
  - ANXIETY [None]
  - PANIC ATTACK [None]
